FAERS Safety Report 5756580-7 (Version None)
Quarter: 2008Q2

REPORT INFORMATION
  Report Type: 
  Country: None (occurrence: None)
  Receive Date: 20080603
  Receipt Date: 20080529
  Transmission Date: 20081010
  Serious: Yes (Death, Congenital Anomaly, Other)
  Sender: FDA-Public Use
  Company Number: GB-RANBAXY-2008RR-15515

PATIENT

DRUGS (1)
  1. ENALAPRIL MALEATE [Suspect]
     Dosage: 10 MG, QD
     Route: 064

REACTIONS (3)
  - FOETAL GROWTH RETARDATION [None]
  - MULTIPLE CONGENITAL ABNORMALITIES [None]
  - PULMONARY MALFORMATION [None]
